FAERS Safety Report 7896935-8 (Version None)
Quarter: 2011Q4

REPORT INFORMATION
  Report Type: 
  Country: None (occurrence: None)
  Receive Date: 20111107
  Receipt Date: 20111026
  Transmission Date: 20120403
  Serious: No
  Sender: FDA-Public Use
  Company Number: US-BAYER-2011-104558

PATIENT
  Age: 66 Year
  Sex: Female

DRUGS (4)
  1. ASPIRIN [Suspect]
     Dosage: 500 MG, ONCE
     Route: 048
  2. BENADRYL [Concomitant]
  3. FISH OIL [Concomitant]
  4. CALCIUM [Concomitant]

REACTIONS (2)
  - TONGUE DISORDER [None]
  - CHOKING SENSATION [None]
